FAERS Safety Report 13340605 (Version 1)
Quarter: 2017Q1

REPORT INFORMATION
  Report Type: Spontaneous
  Country: US (occurrence: US)
  Receive Date: 20170316
  Receipt Date: 20170316
  Transmission Date: 20170428
  Serious: No
  Sender: FDA-Public Use
  Company Number: US-BIOGEN-2017BI00369499

PATIENT
  Sex: Female

DRUGS (1)
  1. TECFIDERA [Suspect]
     Active Substance: DIMETHYL FUMARATE
     Indication: MULTIPLE SCLEROSIS
     Route: 065
     Dates: start: 20150505, end: 20170228

REACTIONS (5)
  - Multiple sclerosis relapse [Recovered/Resolved]
  - Motor dysfunction [Recovered/Resolved]
  - Flushing [Recovered/Resolved]
  - Disorientation [Recovered/Resolved]
  - Hemianaesthesia [Recovered/Resolved]
